FAERS Safety Report 15759664 (Version 1)
Quarter: 2018Q4

REPORT INFORMATION
  Report Type: Report from Study
  Country: BR (occurrence: BR)
  Receive Date: 20181226
  Receipt Date: 20181226
  Transmission Date: 20190205
  Serious: Yes (Hospitalization)
  Sender: FDA-Public Use
  Company Number: BR-BIOGEN-2018BI00675256

PATIENT
  Age: 41 Year
  Sex: Female

DRUGS (1)
  1. TYSABRI [Suspect]
     Active Substance: NATALIZUMAB
     Indication: MULTIPLE SCLEROSIS
     Route: 042
     Dates: start: 20170104, end: 201810

REACTIONS (8)
  - Nephrolithiasis [Unknown]
  - Urinary tract infection [Unknown]
  - Pallor [Unknown]
  - Progressive multiple sclerosis [Unknown]
  - Memory impairment [Not Recovered/Not Resolved]
  - Syncope [Unknown]
  - Infection [Unknown]
  - Pyrexia [Unknown]

NARRATIVE: CASE EVENT DATE: 201802
